APPROVED DRUG PRODUCT: OLEPTRO
Active Ingredient: TRAZODONE HYDROCHLORIDE
Strength: 300MG **Federal Register determination that product was not discontinued or withdrawn for safety or effectiveness reasons**
Dosage Form/Route: TABLET, EXTENDED RELEASE;ORAL
Application: N022411 | Product #002
Applicant: ANGELINI PHARMA INC
Approved: Feb 2, 2010 | RLD: Yes | RS: No | Type: DISCN

PATENTS:
Patent 7829120 | Expires: Mar 27, 2027
Patent 8133893 | Expires: Mar 13, 2029